FAERS Safety Report 5024391-6 (Version None)
Quarter: 2006Q2

REPORT INFORMATION
  Report Type: 
  Country: None (occurrence: None)
  Receive Date: 20060613
  Receipt Date: 20060602
  Transmission Date: 20061013
  Serious: Yes (Hospitalization)
  Sender: FDA-Public Use
  Company Number: US-JNJFOC-20060600949

PATIENT
  Age: 92 Year
  Sex: Female

DRUGS (2)
  1. NIZORAL [Suspect]
     Indication: FUNGAL INFECTION
  2. PLAVIX [Suspect]
     Indication: DRUG USE FOR UNKNOWN INDICATION

REACTIONS (1)
  - EPISTAXIS [None]
